FAERS Safety Report 5793743-9 (Version None)
Quarter: 2008Q2

REPORT INFORMATION
  Report Type: 
  Country: None (occurrence: None)
  Receive Date: 20080627
  Receipt Date: 20080605
  Transmission Date: 20081010
  Serious: Yes (Other)
  Sender: FDA-Public Use
  Company Number: CA-BAYER-200812531BCC

PATIENT
  Age: 28 Year
  Sex: Male

DRUGS (1)
  1. ASPIRIN [Suspect]
     Indication: DRUG USE FOR UNKNOWN INDICATION
     Dosage: TOTAL DAILY DOSE: 1500 MG  UNIT DOSE: 500 MG
     Route: 048
     Dates: start: 20080514

REACTIONS (5)
  - DEPRESSION [None]
  - INSOMNIA [None]
  - RESTLESSNESS [None]
  - SUICIDAL IDEATION [None]
  - TINNITUS [None]
